FAERS Safety Report 9664793 (Version 3)
Quarter: 2013Q4

REPORT INFORMATION
  Report Type: Report from Study
  Country: KR (occurrence: KR)
  Receive Date: 20131101
  Receipt Date: 20131126
  Transmission Date: 20140711
  Serious: Yes (Hospitalization)
  Sender: FDA-Public Use
  Company Number: KR-009507513-1310KOR013685

PATIENT
  Age: 50 Year
  Sex: Female

DRUGS (8)
  1. BOCEPREVIR [Suspect]
     Indication: CHRONIC HEPATITIS C
     Dosage: 4 DF, TID
     Route: 048
     Dates: start: 20130927, end: 20131028
  2. BOCEPREVIR [Suspect]
     Dosage: 4 DF, TID
     Route: 048
     Dates: start: 20131101
  3. PEG-INTRON REDIPEN [Suspect]
     Indication: CHRONIC HEPATITIS C
     Dosage: 90 MICROGRAM, QW (ROUTE: INJECTION)
     Dates: start: 20130830
  4. VIRAMID [Suspect]
     Indication: CHRONIC HEPATITIS C
     Dosage: 400 MG, BID
     Route: 048
     Dates: start: 20130830, end: 20131011
  5. VIRAMID [Suspect]
     Dosage: 200 MG, BID
     Route: 048
     Dates: start: 20131012, end: 20131023
  6. VIRAMID [Suspect]
     Dosage: 200 MG, QD
     Route: 048
     Dates: start: 20131102
  7. LEGALON [Concomitant]
     Indication: PROPHYLAXIS
     Dosage: 140 MG, TID
     Route: 048
     Dates: start: 20130715
  8. ANTIROID [Concomitant]
     Indication: THYROID DISORDER
     Dosage: 4 DF, BID
     Route: 048
     Dates: start: 20130720

REACTIONS (4)
  - Anaemia [Recovered/Resolved with Sequelae]
  - Neutropenia [Recovered/Resolved with Sequelae]
  - Hypophagia [Recovered/Resolved with Sequelae]
  - Decreased appetite [Recovered/Resolved with Sequelae]
